FAERS Safety Report 6137161-2 (Version None)
Quarter: 2009Q1

REPORT INFORMATION
  Report Type: 
  Country: None (occurrence: None)
  Receive Date: 20090326
  Receipt Date: 20090326
  Transmission Date: 20090719
  Serious: Yes (Death)
  Sender: FDA-Public Use
  Company Number: None

PATIENT
  Age: 74 Year
  Sex: Male
  Weight: 68 kg

DRUGS (1)
  1. COLCHICINE 0.6MG [Suspect]
     Indication: GOUT
     Dosage: 1 TABLET Q1H -MAX 6MG/24H- PO
     Route: 048
     Dates: start: 20090319, end: 20090323

REACTIONS (11)
  - CARDIAC ARREST [None]
  - DRUG INEFFECTIVE [None]
  - HYPERKALAEMIA [None]
  - HYPOVOLAEMIA [None]
  - LACTIC ACIDOSIS [None]
  - NAUSEA [None]
  - PAIN [None]
  - RENAL FAILURE ACUTE [None]
  - RESPIRATORY FAILURE [None]
  - SHOCK [None]
  - VOMITING [None]
